FAERS Safety Report 5446341-0 (Version None)
Quarter: 2007Q3

REPORT INFORMATION
  Report Type: 
  Country: None (occurrence: None)
  Receive Date: 20070907
  Receipt Date: 20070904
  Transmission Date: 20080115
  Serious: Yes (Other)
  Sender: FDA-Public Use
  Company Number: A0671165A

PATIENT
  Age: 44 Year
  Sex: Male

DRUGS (5)
  1. LAMICTAL [Suspect]
     Indication: BIPOLAR DISORDER
     Dosage: 300MG PER DAY
     Route: 048
     Dates: start: 20070423, end: 20070701
  2. LITHIUM CARBONATE [Concomitant]
  3. VALIUM [Concomitant]
  4. HYDROCORTISONE [Concomitant]
  5. TYLENOL W/ CODEINE NO. 4 [Concomitant]

REACTIONS (8)
  - AGITATION [None]
  - ANGINA PECTORIS [None]
  - CONSTIPATION [None]
  - HAEMORRHOIDS [None]
  - HEART RATE INCREASED [None]
  - MANIA [None]
  - SUICIDAL IDEATION [None]
  - TREATMENT NONCOMPLIANCE [None]
